FAERS Safety Report 25996520 (Version 1)
Quarter: 2025Q4

REPORT INFORMATION
  Report Type: Spontaneous
  Country: US (occurrence: US)
  Receive Date: 20251104
  Receipt Date: 20251104
  Transmission Date: 20260118
  Serious: No
  Sender: AIMMUNE
  Company Number: US-AIMMUNE THERAPEUTICS, INC.-2025AIMT00774

PATIENT

DRUGS (3)
  1. VOWST [Suspect]
     Active Substance: DONOR HUMAN STOOL SPORES (ETHANOL TREATED)
     Indication: Clostridium difficile infection
     Dosage: THREE DAY THERAPY
     Route: 048
     Dates: start: 20250731
  2. VOWST [Suspect]
     Active Substance: DONOR HUMAN STOOL SPORES (ETHANOL TREATED)
     Dosage: UNK, ONCE, LAST DOSE PRIOR TO EVENT
     Route: 048
  3. ENTYVIO [Concomitant]
     Active Substance: VEDOLIZUMAB
     Indication: Colitis ulcerative

REACTIONS (4)
  - Clostridium test positive [Not Recovered/Not Resolved]
  - Campylobacter test positive [Not Recovered/Not Resolved]
  - Norovirus test positive [Not Recovered/Not Resolved]
  - Diarrhoea [Not Recovered/Not Resolved]

NARRATIVE: CASE EVENT DATE: 20250803
